FAERS Safety Report 9734880 (Version 1)
Quarter: 2013Q4

REPORT INFORMATION
  Report Type: Spontaneous
  Country: US (occurrence: US)
  Receive Date: 20131206
  Receipt Date: 20131206
  Transmission Date: 20140711
  Serious: No
  Sender: FDA-Public Use
  Company Number: US-ENDO PHARMACEUTICALS INC.-BUTA20110002

PATIENT
  Age: 12 Year
  Sex: Male

DRUGS (1)
  1. BUTALBITAL/ACETAMINOPHEN/CAFFEINE TABLETS [Suspect]
     Indication: MIGRAINE
     Dosage: UNK
     Route: 048
     Dates: start: 20010407

REACTIONS (2)
  - Feeling abnormal [Unknown]
  - Dizziness [Unknown]
